FAERS Safety Report 4916657-2 (Version None)
Quarter: 2006Q1

REPORT INFORMATION
  Report Type: 
  Country: None (occurrence: None)
  Receive Date: 20060220
  Receipt Date: 20060124
  Transmission Date: 20060701
  Serious: Yes (Hospitalization, Other)
  Sender: FDA-Public Use
  Company Number: 2006AP00409

PATIENT
  Age: 0 Day
  Sex: Female
  Weight: 3.1 kg

DRUGS (8)
  1. SEROQUEL [Suspect]
     Indication: SCHIZOPHRENIA
     Route: 064
     Dates: start: 20050301, end: 20050825
  2. LUVOX [Suspect]
     Indication: SCHIZOPHRENIA
     Route: 064
     Dates: start: 20050301, end: 20050825
  3. ARTANE [Suspect]
     Indication: SCHIZOPHRENIA
     Route: 064
     Dates: start: 20050301, end: 20050825
  4. CLONAZEPAM [Suspect]
     Indication: SCHIZOPHRENIA
     Route: 064
     Dates: start: 20050301, end: 20050825
  5. HIBERNA [Suspect]
     Indication: SCHIZOPHRENIA
     Route: 064
     Dates: start: 20050301, end: 20050825
  6. SILECE [Suspect]
     Indication: SCHIZOPHRENIA
     Route: 064
     Dates: start: 20050301, end: 20050825
  7. RISPERDAL [Suspect]
     Indication: SCHIZOPHRENIA
     Route: 064
     Dates: start: 20030801, end: 20050825
  8. ELECTROCONVULSIVE THERAPY [Suspect]
     Indication: ELECTROCONVULSIVE THERAPY
     Dosage: 12 TIMES
     Dates: start: 20050101, end: 20050301

REACTIONS (6)
  - ASPIRATION [None]
  - BLOOD CREATINE PHOSPHOKINASE INCREASED [None]
  - BLOOD LACTATE DEHYDROGENASE INCREASED [None]
  - DRUG EXPOSURE DURING PREGNANCY [None]
  - DRUG WITHDRAWAL SYNDROME NEONATAL [None]
  - VACUUM EXTRACTOR DELIVERY [None]
